FAERS Safety Report 6652146-5 (Version None)
Quarter: 2010Q1

REPORT INFORMATION
  Report Type: 
  Country: None (occurrence: None)
  Receive Date: 20100325
  Receipt Date: 20100315
  Transmission Date: 20100710
  Serious: Yes (Hospitalization)
  Sender: FDA-Public Use
  Company Number: GXKR2010FI03278

PATIENT
  Sex: Male

DRUGS (4)
  1. LIPCUT (NGX) [Suspect]
     Indication: HYPERCHOLESTEROLAEMIA
     Dosage: 80 MG, UNK
     Route: 048
     Dates: start: 20030101
  2. ZOCOR [Suspect]
     Indication: HYPERCHOLESTEROLAEMIA
     Dosage: 80 MG, UNK
     Route: 048
     Dates: start: 19990101, end: 20030101
  3. MEVACOR [Suspect]
     Indication: HYPERCHOLESTEROLAEMIA
     Dosage: 80 MG, UNK
     Route: 048
     Dates: start: 19890101, end: 19990101
  4. EZETROL [Concomitant]
     Indication: HYPERCHOLESTEROLAEMIA
     Dosage: UNK
     Route: 048
     Dates: start: 20080101

REACTIONS (5)
  - BALANCE DISORDER [None]
  - MUSCULAR WEAKNESS [None]
  - ON AND OFF PHENOMENON [None]
  - VISION BLURRED [None]
  - VISUAL IMPAIRMENT [None]
